FAERS Safety Report 12292345 (Version 1)
Quarter: 2016Q2

REPORT INFORMATION
  Report Type: Report from Study
  Country: US (occurrence: US)
  Receive Date: 20160421
  Receipt Date: 20160421
  Transmission Date: 20160815
  Serious: No
  Sender: FDA-Public Use
  Company Number: US-AMGEN-USASL2016011153

PATIENT
  Age: 66 Year
  Sex: Female

DRUGS (1)
  1. REPATHA [Suspect]
     Active Substance: EVOLOCUMAB
     Indication: HYPERCHOLESTEROLAEMIA
     Dosage: 140 MG, Q2WK
     Route: 065
     Dates: start: 20151119

REACTIONS (9)
  - Injection site induration [Unknown]
  - Injection site inflammation [Unknown]
  - Injection site erythema [Unknown]
  - Malabsorption from administration site [Unknown]
  - Injection site pruritus [Unknown]
  - Injection site pain [Not Recovered/Not Resolved]
  - Back pain [Unknown]
  - Burning sensation [Unknown]
  - Contusion [Unknown]
